FAERS Safety Report 5258211-1 (Version None)
Quarter: 2007Q1

REPORT INFORMATION
  Report Type: 
  Country: None (occurrence: None)
  Receive Date: 20070307
  Receipt Date: 20070305
  Transmission Date: 20070707
  Serious: Yes (Death)
  Sender: FDA-Public Use
  Company Number: GB-MERCK-0606GBR00073

PATIENT
  Sex: Male

DRUGS (22)
  1. DECADRON [Suspect]
     Route: 065
  2. ASPIRIN [Suspect]
     Route: 065
  3. ATORVASTATIN CALCIUM [Suspect]
     Route: 065
  4. BECLOMETHASONE DIPROPIONATE [Suspect]
  5. DILTIAZEM HYDROCHLORIDE [Suspect]
     Route: 065
  6. DOTHIEPIN HYDROCHLORIDE [Suspect]
     Route: 065
  7. AMILORIDE HYDROCHLORIDE AND FUROSEMIDE [Suspect]
     Route: 065
  8. FUROSEMIDE [Suspect]
     Route: 065
  9. ALUMINUM HYDROXIDE AND MAGNESIUM TRISILICATE [Suspect]
     Route: 065
  10. LACTULOSE [Suspect]
     Route: 065
  11. LANSOPRAZOLE [Suspect]
     Route: 065
  12. METOCLOPRAMIDE [Suspect]
     Route: 065
  13. NITROGLYCERIN [Suspect]
     Route: 065
  14. LEVOMEPROMAZINE [Suspect]
     Route: 065
  15. OXYCODONE [Suspect]
     Route: 065
  16. OXYGEN [Suspect]
  17. ALBUTEROL [Suspect]
  18. SPIRONOLACTONE [Suspect]
     Route: 065
  19. BUDESONIDE AND FORMOTEROL FUMARATE [Suspect]
  20. ALBUTEROL SULFATE AND IPRATROPIUM BROMIDE [Suspect]
     Indication: CHRONIC OBSTRUCTIVE PULMONARY DISEASE
     Dates: start: 20030617, end: 20040513
  21. TIOTROPIUM BROMIDE [Suspect]
     Indication: CHRONIC OBSTRUCTIVE PULMONARY DISEASE
     Dates: start: 20030617
  22. TEMAZEPAM [Suspect]
     Route: 065

REACTIONS (1)
  - MESOTHELIOMA [None]
